FAERS Safety Report 20863379 (Version 2)
Quarter: 2022Q2

REPORT INFORMATION
  Report Type: Spontaneous
  Country: ES (occurrence: ES)
  Receive Date: 20220523
  Receipt Date: 20220531
  Transmission Date: 20220721
  Serious: Yes (Death, Hospitalization)
  Sender: FDA-Public Use
  Company Number: ES-PFIZER INC-202200731683

PATIENT

DRUGS (2)
  1. METHOTREXATE [Suspect]
     Active Substance: METHOTREXATE
     Indication: Scleritis
     Dosage: 4 DF, WEEKLY
     Route: 064
     Dates: start: 20211125, end: 20220114
  2. USTEKINUMAB [Suspect]
     Active Substance: USTEKINUMAB
     Indication: Psoriasis
     Route: 064
     Dates: start: 20211108, end: 20220114

REACTIONS (2)
  - Maternal exposure during pregnancy [Fatal]
  - Hypoplastic left heart syndrome [Fatal]

NARRATIVE: CASE EVENT DATE: 20211125
